FAERS Safety Report 7809405-X (Version None)
Quarter: 2011Q4

REPORT INFORMATION
  Report Type: 
  Country: None (occurrence: None)
  Receive Date: 20111012
  Receipt Date: 20111007
  Transmission Date: 20120403
  Serious: Yes (Other)
  Sender: FDA-Public Use
  Company Number: US-CELGENEUS-163-21880-11100920

PATIENT
  Age: 73 Year
  Sex: Male
  Weight: 104.6 kg

DRUGS (3)
  1. DEXAMETHASONE [Concomitant]
     Route: 065
     Dates: start: 20110316
  2. REVLIMID [Suspect]
     Route: 048
     Dates: start: 20110316
  3. REVLIMID [Suspect]
     Dosage: 100 MILLIGRAM
     Route: 048
     Dates: start: 20091207, end: 20091212

REACTIONS (1)
  - MYELODYSPLASTIC SYNDROME [None]
